FAERS Safety Report 24624627 (Version 1)
Quarter: 2024Q4

REPORT INFORMATION
  Report Type: Spontaneous
  Country: US (occurrence: None)
  Receive Date: 20241115
  Receipt Date: 20241115
  Transmission Date: 20250114
  Serious: No
  Sender: Public
  Company Number: None

PATIENT
  Age: 68 Year
  Sex: Male
  Weight: 112 kg

DRUGS (1)
  1. TICAGRELOR [Suspect]
     Active Substance: TICAGRELOR
     Indication: Coronary arterial stent insertion
     Dates: start: 20240222

REACTIONS (3)
  - Dyspnoea [None]
  - Respiratory depression [None]
  - Therapy change [None]

NARRATIVE: CASE EVENT DATE: 20240328
